FAERS Safety Report 10497187 (Version 2)
Quarter: 2015Q1

REPORT INFORMATION
  Report Type: Report from Study
  Country: BR (occurrence: BR)
  Receive Date: 20141006
  Receipt Date: 20150216
  Transmission Date: 20150720
  Serious: Yes (Hospitalization)
  Sender: FDA-Public Use
  Company Number: PHHY2014BR129313

PATIENT
  Sex: Male
  Weight: 77 kg

DRUGS (6)
  1. MAREVAN [Suspect]
     Active Substance: WARFARIN SODIUM
     Indication: BLOOD DISORDER
     Dosage: 7.5 MG (1 TABLET AND A PART OF TABLET), UNK
     Route: 065
  2. SANDOSTATIN LAR DEPOT [Suspect]
     Active Substance: OCTREOTIDE ACETATE
     Indication: ACROMEGALY
     Dosage: 30 MG, QMO
     Route: 065
     Dates: start: 2011
  3. MAREVAN [Suspect]
     Active Substance: WARFARIN SODIUM
     Dosage: 6.25 MG (1 TABLET AND 1/4 TABLET), UNK
  4. DIOVAN [Suspect]
     Active Substance: VALSARTAN
     Indication: HYPERTENSION
     Dosage: 160 MG, DAY
     Route: 065
  5. MAREVAN [Suspect]
     Active Substance: WARFARIN SODIUM
     Dosage: 0.5 MG, DAY
     Route: 065
  6. SANDOSTATIN LAR DEPOT [Suspect]
     Active Substance: OCTREOTIDE ACETATE
     Dosage: 30 MG, EVERY 28 DAYS
     Route: 065

REACTIONS (7)
  - Weight decreased [Unknown]
  - Arthralgia [Recovered/Resolved]
  - Arthropathy [Unknown]
  - Prothrombin time abnormal [Recovered/Resolved]
  - Pain in extremity [Recovered/Resolved]
  - Cartilage injury [Recovered/Resolved]
  - Coagulopathy [Recovered/Resolved]
